FAERS Safety Report 14492292 (Version 1)
Quarter: 2018Q1

REPORT INFORMATION
  Report Type: Report from Study
  Country: None (occurrence: US)
  Receive Date: 20180206
  Receipt Date: 20180206
  Transmission Date: 20180509
  Serious: Yes (Other)
  Sender: FDA-Public Use
  Company Number: US-ABBVIE-18K-163-2239829-00

PATIENT
  Age: 39 Year
  Sex: Female

DRUGS (2)
  1. LUPRON DEPOT [Suspect]
     Active Substance: LEUPROLIDE ACETATE
     Indication: ENDOMETRIOSIS
     Route: 030
     Dates: start: 20180119
  2. LUPRON DEPOT [Suspect]
     Active Substance: LEUPROLIDE ACETATE
     Indication: ENDOMETRIOSIS
     Route: 030
     Dates: start: 20171222, end: 20171222

REACTIONS (4)
  - Partial seizures [Recovering/Resolving]
  - Fatigue [Unknown]
  - Asthenia [Unknown]
  - Flashback [Recovering/Resolving]

NARRATIVE: CASE EVENT DATE: 20180124
